FAERS Safety Report 20912667 (Version 1)
Quarter: 2022Q2

REPORT INFORMATION
  Report Type: Spontaneous
  Country: US (occurrence: None)
  Receive Date: 20220603
  Receipt Date: 20220603
  Transmission Date: 20220721
  Serious: Yes (Hospitalization, Other)
  Sender: FDA-Public Use
  Company Number: None

PATIENT
  Age: 65 Year
  Sex: Female
  Weight: 129 kg

DRUGS (1)
  1. ABECMA [Suspect]
     Active Substance: IDECABTAGENE VICLEUCEL
     Indication: Plasma cell myeloma
     Dosage: OTHER QUANTITY : 444.43X10^6 CAR-T ;?FREQUENCY : ONCE;?
     Route: 042
     Dates: start: 20220502, end: 20220502

REACTIONS (1)
  - Neurotoxicity [None]

NARRATIVE: CASE EVENT DATE: 20220508
